FAERS Safety Report 9846597 (Version 1)
Quarter: 2014Q1

REPORT INFORMATION
  Report Type: Spontaneous
  Country: GR (occurrence: None)
  Receive Date: 20140122
  Receipt Date: 20140122
  Transmission Date: 20141002
  Serious: Yes (Hospitalization)
  Sender: FDA-Public Use
  Company Number: 2014P1000184

PATIENT
  Age: 40 Year
  Sex: Female

DRUGS (1)
  1. HYDROCHLOROQUINE [Suspect]
     Indication: LICHEN PLANUS
     Route: 048

REACTIONS (3)
  - Agitation [None]
  - Leukocytosis [None]
  - Pustular psoriasis [None]
